FAERS Safety Report 7758589-0 (Version None)
Quarter: 2011Q3

REPORT INFORMATION
  Report Type: 
  Country: None (occurrence: None)
  Receive Date: 20110919
  Receipt Date: 20110907
  Transmission Date: 20111222
  Serious: Yes (Hospitalization)
  Sender: FDA-Public Use
  Company Number: US-ELI_LILLY_AND_COMPANY-US201109002683

PATIENT
  Age: 82 Year
  Sex: Male

DRUGS (9)
  1. OXYCODONE HCL [Concomitant]
  2. OMEPRAZOLE [Concomitant]
  3. NORTRIPTYLINE HCL [Concomitant]
  4. TRAMADOL                           /00599201/ [Concomitant]
  5. BUSPIRONE [Concomitant]
  6. CYMBALTA [Suspect]
     Dosage: UNK
  7. AMBIEN [Concomitant]
     Dosage: UNK, UNKNOWN
  8. LORAZEPAM [Concomitant]
  9. ROPINIROLE [Concomitant]

REACTIONS (7)
  - AMNESIA [None]
  - RESTLESS LEGS SYNDROME [None]
  - ABNORMAL BEHAVIOUR [None]
  - FALL [None]
  - SUICIDAL IDEATION [None]
  - SLEEP DISORDER [None]
  - DRUG INEFFECTIVE [None]
